FAERS Safety Report 17685609 (Version 2)
Quarter: 2020Q2

REPORT INFORMATION
  Report Type: Spontaneous
  Country: CA (occurrence: CA)
  Receive Date: 20200420
  Receipt Date: 20200424
  Transmission Date: 20200714
  Serious: Yes (Hospitalization, Other)
  Sender: FDA-Public Use
  Company Number: CA-SAMSUNG BIOEPIS-SB-2020-13389

PATIENT
  Age: 30 Year
  Sex: Female

DRUGS (2)
  1. PREDNISONE. [Concomitant]
     Active Substance: PREDNISONE
     Indication: PRODUCT USED FOR UNKNOWN INDICATION
     Route: 065
  2. INFLIXIMAB [Suspect]
     Active Substance: INFLIXIMAB
     Indication: COLITIS ULCERATIVE
     Route: 042

REACTIONS (11)
  - Rash macular [Recovered/Resolved]
  - Urticaria [Recovered/Resolved]
  - Vaginal haemorrhage [Recovered/Resolved]
  - Drug level below therapeutic [Recovered/Resolved]
  - Arthralgia [Recovered/Resolved]
  - Maternal exposure during pregnancy [Recovered/Resolved]
  - Inappropriate schedule of product administration [Recovered/Resolved]
  - Off label use [Recovered/Resolved]
  - Condition aggravated [Recovered/Resolved]
  - Drug specific antibody present [Recovered/Resolved]
  - Lupus-like syndrome [Recovered/Resolved]
